FAERS Safety Report 8874138 (Version 3)
Quarter: 2013Q2

REPORT INFORMATION
  Report Type: Spontaneous
  Country: FI (occurrence: FI)
  Receive Date: 20121031
  Receipt Date: 20130410
  Transmission Date: 20140414
  Serious: Yes (Hospitalization, Other)
  Sender: FDA-Public Use
  Company Number: FI-AMGEN-FINSP2012065755

PATIENT
  Age: 22 Year
  Sex: Male
  Weight: 62 kg

DRUGS (7)
  1. ENBREL [Suspect]
     Indication: JUVENILE IDIOPATHIC ARTHRITIS
     Dosage: 50MG ONCE WEEKLY
     Route: 058
     Dates: start: 20100528, end: 20120528
  2. TREXAN                             /00113801/ [Concomitant]
     Dosage: 10 MG, WEEKLY
     Dates: start: 2010
  3. FOLVITE                            /00024201/ [Concomitant]
     Dosage: UNK
     Dates: start: 2010
  4. BENADRYL                           /00945501/ [Concomitant]
     Indication: HYPERSENSITIVITY
     Dosage: 8 MG, TWICE DAILY AS NEEDED
  5. KESTINE [Concomitant]
     Indication: HYPERSENSITIVITY
     Dosage: UNK UNK, AS NEEDED
  6. DUACT [Concomitant]
     Indication: HYPERSENSITIVITY
     Dosage: UNK UNK, AS NEEDED
  7. NASONEX [Concomitant]
     Indication: HYPERSENSITIVITY
     Dosage: UNK
     Dates: start: 1994, end: 2000

REACTIONS (2)
  - Arthralgia [Unknown]
  - Colitis ulcerative [Recovering/Resolving]
